FAERS Safety Report 6975978-2 (Version None)
Quarter: 2010Q3

REPORT INFORMATION
  Report Type: 
  Country: None (occurrence: None)
  Receive Date: 20100910
  Receipt Date: 20100826
  Transmission Date: 20110219
  Serious: Yes (Other)
  Sender: FDA-Public Use
  Company Number: FR-SANOFI-AVENTIS-2010SA050677

PATIENT
  Age: 65 Year
  Sex: Female

DRUGS (3)
  1. ELOXATIN [Suspect]
     Indication: RECTAL CANCER
     Route: 042
     Dates: start: 20100726, end: 20100810
  2. CALCIUM LEVOFOLINATE [Concomitant]
     Indication: RECTAL CANCER
     Dates: start: 20100726
  3. FLUOROURACIL [Concomitant]
     Indication: RECTAL CANCER
     Dates: start: 20100726

REACTIONS (5)
  - EXTRASYSTOLES [None]
  - MALAISE [None]
  - MUSCLE SPASMS [None]
  - TACHYCARDIA [None]
  - TREMOR [None]
